FAERS Safety Report 15215850 (Version 1)
Quarter: 2018Q3

REPORT INFORMATION
  Report Type: Spontaneous
  Country: BR (occurrence: BR)
  Receive Date: 20180730
  Receipt Date: 20180730
  Transmission Date: 20181010
  Serious: Yes (Other)
  Sender: FDA-Public Use
  Company Number: BR-PFIZER INC-2018301931

PATIENT
  Age: 67 Year
  Sex: Female

DRUGS (2)
  1. CHAMPIX [Suspect]
     Active Substance: VARENICLINE TARTRATE
     Indication: SMOKING CESSATION THERAPY
  2. CEBRALAT [Concomitant]
     Active Substance: CILOSTAZOL

REACTIONS (4)
  - Cardiovascular disorder [Unknown]
  - Infarction [Unknown]
  - Emotional disorder [Unknown]
  - Prescription drug used without a prescription [Unknown]
